FAERS Safety Report 5648071-9 (Version None)
Quarter: 2008Q1

REPORT INFORMATION
  Report Type: 
  Country: None (occurrence: None)
  Receive Date: 20080229
  Receipt Date: 20080229
  Transmission Date: 20080703
  Serious: Yes (Hospitalization)
  Sender: FDA-Public Use
  Company Number: None

PATIENT
  Age: 60 Year
  Sex: Male
  Weight: 101.5 kg

DRUGS (2)
  1. METOPROLOL TARTRATE [Suspect]
     Indication: HYPERTENSION
     Dosage: 50MG BID PO
     Route: 048
     Dates: start: 19950609
  2. VERAPAMIL [Suspect]
     Indication: HYPERTENSION
     Dosage: 240MG EVERY DAY PO
     Route: 048
     Dates: start: 19970403, end: 20080218

REACTIONS (1)
  - SYNCOPE [None]
